FAERS Safety Report 8057190-1 (Version None)
Quarter: 2012Q1

REPORT INFORMATION
  Report Type: 
  Country: None (occurrence: None)
  Receive Date: 20120119
  Receipt Date: 20120111
  Transmission Date: 20120608
  Serious: Yes (Hospitalization, Other)
  Sender: FDA-Public Use
  Company Number: PHEH2011US05389

PATIENT
  Sex: Female
  Weight: 49.89 kg

DRUGS (19)
  1. CELEBREX [Concomitant]
     Dosage: UNK
  2. GILENYA [Suspect]
     Indication: MULTIPLE SCLEROSIS
     Dosage: 0.5 MG, QD
     Route: 048
     Dates: start: 20110622, end: 20110902
  3. MILNACIPRAN [Concomitant]
     Dosage: 12.5 MG, BID
     Route: 048
     Dates: start: 20110923
  4. SERTRALINE HYDROCHLORIDE [Concomitant]
     Dosage: 50 MG, QD
     Route: 048
  5. ZONEGRAN [Concomitant]
     Dosage: 100 MG, BID
     Route: 048
  6. TRAZODONE HCL [Concomitant]
     Dosage: 100 MG, QD
     Route: 048
  7. ZANAFLEX [Concomitant]
     Dosage: 4 MG, TID
     Route: 048
  8. LYRICA [Concomitant]
     Dosage: 50 MG, TID
     Route: 048
     Dates: start: 20110615
  9. METHOCARBAMOL [Concomitant]
     Dosage: 500 MG, BID
     Route: 048
     Dates: start: 20110705
  10. SEROQUEL [Concomitant]
     Dosage: 400 MG, QD
  11. NUEDEXTA [Concomitant]
  12. ALBUTEROL [Concomitant]
  13. FLOVENT [Concomitant]
  14. GILENYA [Suspect]
     Dosage: 0.5 MG, QD
     Route: 048
     Dates: start: 20111101
  15. PERCOCET [Concomitant]
     Dosage: 1 DF, TID
     Route: 048
     Dates: start: 20110926
  16. MARINOL [Concomitant]
     Indication: NAUSEA
     Dosage: 5 MG, BID
     Route: 048
     Dates: start: 20110804
  17. TALWIN [Concomitant]
     Indication: PAIN
     Dosage: 50 MG, TID
     Route: 048
     Dates: start: 20111006
  18. CLONAZEPAM [Concomitant]
     Dosage: 0.5 MG, TID
     Route: 048
  19. HYDROXYZINE PAMOATE [Concomitant]
     Dosage: 25 MG, QD
     Route: 048

REACTIONS (25)
  - VISUAL ACUITY REDUCED [None]
  - BACK PAIN [None]
  - BACTERIAL INFECTION [None]
  - ATAXIA [None]
  - EYE SWELLING [None]
  - BLADDER DYSFUNCTION [None]
  - NECK PAIN [None]
  - VISUAL IMPAIRMENT [None]
  - FALL [None]
  - VISION BLURRED [None]
  - DIZZINESS [None]
  - STAPHYLOCOCCAL INFECTION [None]
  - LAGOPHTHALMOS [None]
  - MUSCULAR WEAKNESS [None]
  - COORDINATION ABNORMAL [None]
  - CENTRAL NERVOUS SYSTEM LESION [None]
  - BLOOD PRESSURE ABNORMAL [None]
  - EYE PAIN [None]
  - SKIN WRINKLING [None]
  - CRYING [None]
  - DRUG INTOLERANCE [None]
  - HEADACHE [None]
  - SPINAL OSTEOARTHRITIS [None]
  - LACRIMATION INCREASED [None]
  - STRESS [None]
